FAERS Safety Report 25637966 (Version 4)
Quarter: 2025Q4

REPORT INFORMATION
  Report Type: Spontaneous
  Country: ID (occurrence: ID)
  Receive Date: 20250804
  Receipt Date: 20251028
  Transmission Date: 20260118
  Serious: Yes (Other)
  Sender: PFIZER
  Company Number: ID-PFIZER INC-PV202500091606

PATIENT

DRUGS (1)
  1. LORLATINIB [Suspect]
     Active Substance: LORLATINIB
     Indication: Non-small cell lung cancer
     Dosage: UNK

REACTIONS (25)
  - Arrhythmia [Unknown]
  - Pneumonia [Unknown]
  - Pulmonary mass [Unknown]
  - Non-small cell lung cancer [Unknown]
  - Malignant neoplasm progression [Unknown]
  - Neuropathy peripheral [Unknown]
  - Thrombocytopenia [Unknown]
  - Abdominal pain upper [Unknown]
  - Defaecation disorder [Unknown]
  - Hypernatraemia [Unknown]
  - Atrioventricular block [Unknown]
  - Hypercholesterolaemia [Unknown]
  - Oedema [Unknown]
  - Dry mouth [Unknown]
  - Dry throat [Unknown]
  - Thirst [Unknown]
  - Oral candidiasis [Unknown]
  - Dyslipidaemia [Unknown]
  - Pain in extremity [Unknown]
  - Pyrexia [Unknown]
  - Erythema [Unknown]
  - Sinus tachycardia [Unknown]
  - Cardiomegaly [Unknown]
  - Pleural effusion [Unknown]
  - Hypertriglyceridaemia [Unknown]

NARRATIVE: CASE EVENT DATE: 20250101
